FAERS Safety Report 12465496 (Version 2)
Quarter: 2016Q3

REPORT INFORMATION
  Report Type: Spontaneous
  Country: US (occurrence: US)
  Receive Date: 20160614
  Receipt Date: 20160706
  Transmission Date: 20161109
  Serious: No
  Sender: FDA-Public Use
  Company Number: US-BAYER-2016-115919

PATIENT
  Age: 77 Year
  Sex: Female
  Weight: 74.83 kg

DRUGS (1)
  1. CLARITIN-D 12 HOUR [Suspect]
     Active Substance: LORATADINE\PSEUDOEPHEDRINE SULFATE
     Indication: SEASONAL ALLERGY
     Dosage: 1 DF, BID
     Route: 048
     Dates: start: 20160606, end: 20160608

REACTIONS (5)
  - Mood altered [None]
  - Rhinorrhoea [None]
  - Dizziness [Recovered/Resolved]
  - Chest discomfort [None]
  - Ear discomfort [Recovered/Resolved]

NARRATIVE: CASE EVENT DATE: 20160606
